FAERS Safety Report 7392814-3 (Version None)
Quarter: 2011Q1

REPORT INFORMATION
  Report Type: 
  Country: None (occurrence: None)
  Receive Date: 20110330
  Receipt Date: 20110330
  Transmission Date: 20110831
  Serious: No
  Sender: FDA-Public Use
  Company Number: None

PATIENT
  Age: 64 Year
  Sex: Female
  Weight: 68.0396 kg

DRUGS (2)
  1. PRISTIQ [Suspect]
     Indication: DEPRESSION
     Dosage: 100MG PER DAY PO
     Route: 048
     Dates: start: 20090102, end: 20110321
  2. PRISTIQ [Suspect]
     Indication: ANXIETY
     Dosage: 100MG PER DAY PO
     Route: 048
     Dates: start: 20090102, end: 20110321

REACTIONS (1)
  - PAIN IN EXTREMITY [None]
